FAERS Safety Report 8613301-8 (Version None)
Quarter: 2012Q3

REPORT INFORMATION
  Report Type: 
  Country: None (occurrence: None)
  Receive Date: 20120822
  Receipt Date: 20120806
  Transmission Date: 20120928
  Serious: Yes (Hospitalization, Disabling, Other)
  Sender: FDA-Public Use
  Company Number: US-009507513-1111USA00633

PATIENT

DRUGS (5)
  1. ALENDRONATE SODIUM [Suspect]
     Indication: OSTEOPOROSIS
     Dosage: 70 MG, UNK
     Route: 048
     Dates: start: 20080101, end: 20110430
  2. FOSAMAX [Suspect]
  3. FOSAMAX [Suspect]
     Dosage: 70 MG, UNK
     Route: 048
     Dates: start: 20080801, end: 20110401
  4. FOSAMAX [Suspect]
     Indication: OSTEOPOROSIS
     Dosage: 70 MG, UNK
     Route: 048
     Dates: start: 19990801, end: 20080101
  5. FOSAMAX [Suspect]
     Indication: OSTEOPENIA
     Dosage: 70 MG, QW
     Route: 048
     Dates: end: 20110101

REACTIONS (80)
  - SEPTIC SHOCK [None]
  - LEUKOCYTOSIS [None]
  - HOSPITALISATION [None]
  - CATARACT [None]
  - DECREASED APPETITE [None]
  - RHINITIS [None]
  - VENOUS THROMBOSIS [None]
  - PLEURAL EFFUSION [None]
  - AORTIC ARTERIOSCLEROSIS [None]
  - NAUSEA [None]
  - FRACTURE DELAYED UNION [None]
  - PYREXIA [None]
  - PULMONARY HYPERTENSION [None]
  - VISUAL ACUITY REDUCED [None]
  - DYSURIA [None]
  - SINUS HEADACHE [None]
  - BONE DISORDER [None]
  - POLYP [None]
  - ASCITES [None]
  - EYE DISORDER [None]
  - ABDOMINAL PAIN [None]
  - UROSEPSIS [None]
  - ABDOMINAL COMPARTMENT SYNDROME [None]
  - BODY TEMPERATURE INCREASED [None]
  - CLOSTRIDIUM DIFFICILE COLITIS [None]
  - CHONDROPATHY [None]
  - HYPOKALAEMIA [None]
  - DEPRESSION [None]
  - INCONTINENCE [None]
  - POLLAKIURIA [None]
  - VIRAL SINUSITIS [None]
  - OSTEOARTHRITIS [None]
  - WEIGHT DECREASED [None]
  - HYPERAEMIA [None]
  - TRACHEAL DISORDER [None]
  - GASTROINTESTINAL DISORDER [None]
  - ANAEMIA [None]
  - DIZZINESS [None]
  - CLOSTRIDIAL INFECTION [None]
  - BLOOD PRESSURE DECREASED [None]
  - DYSPNOEA [None]
  - MALAISE [None]
  - UPPER-AIRWAY COUGH SYNDROME [None]
  - OEDEMA PERIPHERAL [None]
  - RENAL FAILURE ACUTE [None]
  - ASTHENIA [None]
  - INCISIONAL HERNIA REPAIR [None]
  - HYPERTENSION [None]
  - IRON DEFICIENCY ANAEMIA [None]
  - WHEEZING [None]
  - HAEMATURIA [None]
  - SKIN ULCER [None]
  - CONSTIPATION [None]
  - FEMUR FRACTURE [None]
  - METABOLIC ACIDOSIS [None]
  - ACUTE RESPIRATORY FAILURE [None]
  - DYSTHYMIC DISORDER [None]
  - FISTULA [None]
  - PHANTOM PAIN [None]
  - BONE GIANT CELL TUMOUR [None]
  - MEGACOLON [None]
  - WOUND DRAINAGE [None]
  - ABDOMINAL HERNIA [None]
  - PRODUCTIVE COUGH [None]
  - OSTEOMYELITIS CHRONIC [None]
  - SECRETION DISCHARGE [None]
  - HIATUS HERNIA [None]
  - VERTIGO [None]
  - BASAL CELL CARCINOMA [None]
  - UTERINE CANCER [None]
  - ANAEMIA POSTOPERATIVE [None]
  - HYPERKALAEMIA [None]
  - FALL [None]
  - ANXIETY DISORDER [None]
  - FATIGUE [None]
  - CHEST PAIN [None]
  - CELLULITIS [None]
  - DEEP VEIN THROMBOSIS [None]
  - LUNG DISORDER [None]
  - DIARRHOEA [None]
